FAERS Safety Report 14881495 (Version 18)
Quarter: 2025Q1

REPORT INFORMATION
  Report Type: Spontaneous
  Country: US (occurrence: US)
  Receive Date: 20180511
  Receipt Date: 20250218
  Transmission Date: 20250408
  Serious: Yes (Hospitalization, Other)
  Sender: PFIZER
  Company Number: US-PFIZER INC-2018190663

PATIENT
  Age: 63 Year
  Sex: Male
  Weight: 109 kg

DRUGS (2)
  1. XALKORI [Suspect]
     Active Substance: CRIZOTINIB
     Indication: Lung cancer metastatic
     Dosage: TAKE 1 CAPSULE (250MG) ONCE DAILY
     Route: 048
     Dates: start: 201702
  2. XALKORI [Suspect]
     Active Substance: CRIZOTINIB
     Dosage: 1 CAPSULE ORALLY DAILY
     Route: 048

REACTIONS (2)
  - Intervertebral disc degeneration [Recovered/Resolved]
  - Laryngitis [Unknown]
